FAERS Safety Report 10046475 (Version 1)
Quarter: 2014Q1

REPORT INFORMATION
  Report Type: Spontaneous
  Country: DE (occurrence: DE)
  Receive Date: 20140331
  Receipt Date: 20140331
  Transmission Date: 20141002
  Serious: Yes (Hospitalization, Other)
  Sender: FDA-Public Use
  Company Number: DE-SHIRE-DE201400781

PATIENT
  Sex: Female

DRUGS (3)
  1. XAGRID [Suspect]
     Indication: POLYCYTHAEMIA VERA
     Dosage: 2.5 MG, UNKNOWN
     Route: 048
     Dates: start: 2009
  2. ASS [Concomitant]
     Indication: PRODUCT USED FOR UNKNOWN INDICATION
     Dosage: UNK, UNKNOWN
     Route: 065
  3. CHLORTALIDONE [Concomitant]
     Indication: PRODUCT USED FOR UNKNOWN INDICATION
     Dosage: UNK, UNKNOWN
     Route: 065

REACTIONS (9)
  - Intestinal infarction [Unknown]
  - Ovarian necrosis [Unknown]
  - Bladder necrosis [Unknown]
  - Mesenteric arterial occlusion [Unknown]
  - Intestinal ischaemia [Unknown]
  - Intestinal haemorrhage [Unknown]
  - Skin discolouration [Unknown]
  - Infarction [Unknown]
  - Off label use [Unknown]
